FAERS Safety Report 5422485-4 (Version None)
Quarter: 2007Q3

REPORT INFORMATION
  Report Type: 
  Country: None (occurrence: None)
  Receive Date: 20070822
  Receipt Date: 20070810
  Transmission Date: 20080115
  Serious: Yes (Hospitalization, Other)
  Sender: FDA-Public Use
  Company Number: US-ROCHE-475785

PATIENT
  Age: 46 Year
  Sex: Male

DRUGS (6)
  1. PEGASYS [Suspect]
     Route: 065
     Dates: start: 20060925, end: 20070701
  2. RIBAVIRIN [Suspect]
     Route: 065
     Dates: end: 20070309
  3. NEUPOGEN [Suspect]
     Indication: DRUG USE FOR UNKNOWN INDICATION
     Route: 065
  4. PROZAC [Concomitant]
     Indication: DRUG USE FOR UNKNOWN INDICATION
     Dosage: DOSE INCREASED FROM 20 MG TO 40 MG.
  5. XANAX [Concomitant]
     Indication: DRUG USE FOR UNKNOWN INDICATION
  6. PROCRIT [Concomitant]

REACTIONS (10)
  - ANAEMIA [None]
  - BACK PAIN [None]
  - BLOOD POTASSIUM INCREASED [None]
  - HAEMOGLOBIN DECREASED [None]
  - NEUTROPENIA [None]
  - NEUTROPHIL COUNT DECREASED [None]
  - PAIN [None]
  - PAIN IN EXTREMITY [None]
  - PLATELET COUNT DECREASED [None]
  - WHITE BLOOD CELL COUNT DECREASED [None]
